FAERS Safety Report 18977079 (Version 1)
Quarter: 2021Q1

REPORT INFORMATION
  Report Type: Spontaneous
  Country: JP (occurrence: JP)
  Receive Date: 20210306
  Receipt Date: 20210306
  Transmission Date: 20210420
  Serious: Yes (Life-Threatening, Hospitalization, Other)
  Sender: FDA-Public Use
  Company Number: JP-ACCORD-218567

PATIENT
  Age: 77 Year
  Sex: Male
  Weight: 44 kg

DRUGS (5)
  1. OXALIPLATIN. [Suspect]
     Active Substance: OXALIPLATIN
     Indication: COLON CANCER STAGE IV
     Dosage: DAY 1 ON EACH 2?WEEK CYCLE
  2. BEVACIZUMAB. [Suspect]
     Active Substance: BEVACIZUMAB
     Indication: COLON CANCER STAGE IV
     Dosage: DAY 1 ON EACH 2?WEEK CYCLE
  3. FLUOROURACIL. [Suspect]
     Active Substance: FLUOROURACIL
     Indication: COLON CANCER STAGE IV
     Dosage: 46?HOUR CONTINUOUS I.V. INFUSION, ON EACH 2?WEEK CYCLE
     Route: 041
  4. FLUOROURACIL. [Suspect]
     Active Substance: FLUOROURACIL
     Indication: COLON CANCER STAGE IV
     Dosage: DAY 1 ON EACH 2?WEEK CYCLE
  5. FOLINIC ACID [Suspect]
     Active Substance: LEUCOVORIN
     Indication: COLON CANCER STAGE IV
     Dosage: DAY 1 ON EACH 2?WEEK CYCLE

REACTIONS (1)
  - Hyperammonaemic encephalopathy [Recovered/Resolved]
